FAERS Safety Report 6529070-1 (Version None)
Quarter: 2009Q4

REPORT INFORMATION
  Report Type: 
  Country: None (occurrence: None)
  Receive Date: 20091223
  Receipt Date: 20091210
  Transmission Date: 20100525
  Serious: Yes (Other)
  Sender: FDA-Public Use
  Company Number: 8044286

PATIENT
  Sex: Female
  Weight: 53 kg

DRUGS (4)
  1. CIMZIA (CIMZIA) [Suspect]
     Indication: CROHN'S DISEASE
     Dosage: SEE IMAGE
     Dates: start: 20080901
  2. REMICADE [Concomitant]
  3. HUMIRA [Concomitant]
  4. TARDYFERON /00023503/ [Concomitant]

REACTIONS (13)
  - ANAEMIA [None]
  - CAESAREAN SECTION [None]
  - CONDITION AGGRAVATED [None]
  - CROHN'S DISEASE [None]
  - DRUG EXPOSURE DURING PREGNANCY [None]
  - DRUG INEFFECTIVE [None]
  - FATIGUE [None]
  - INFLAMMATION [None]
  - LACTATION DISORDER [None]
  - PLATELET COUNT DECREASED [None]
  - PREGNANCY [None]
  - TOXOPLASMOSIS [None]
  - WEIGHT GAIN POOR [None]
